FAERS Safety Report 4748870-1 (Version None)
Quarter: 2005Q3

REPORT INFORMATION
  Report Type: 
  Country: None (occurrence: None)
  Receive Date: 20050819
  Receipt Date: 20050812
  Transmission Date: 20060218
  Serious: Yes (Hospitalization)
  Sender: FDA-Public Use
  Company Number: FR-GLAXOSMITHKLINE-B0390999A

PATIENT
  Age: 35 Year
  Sex: Female
  Weight: 47 kg

DRUGS (2)
  1. AUGMENTIN '125' [Suspect]
     Indication: DRUG USE FOR UNKNOWN INDICATION
     Route: 042
     Dates: start: 20050622, end: 20050622
  2. GLUCOSE [Concomitant]
     Route: 042
     Dates: start: 20050622

REACTIONS (4)
  - DYSPHONIA [None]
  - EYELID OEDEMA [None]
  - RESPIRATORY DISORDER [None]
  - SNEEZING [None]
